FAERS Safety Report 16584679 (Version 1)
Quarter: 2019Q3

REPORT INFORMATION
  Report Type: Spontaneous
  Country: US (occurrence: US)
  Receive Date: 20190716
  Receipt Date: 20190716
  Transmission Date: 20191004
  Serious: No
  Sender: FDA-Public Use
  Company Number: None

PATIENT
  Age: 57 Year
  Sex: Female
  Weight: 82.35 kg

DRUGS (18)
  1. PRILOSEC 20 MG [Concomitant]
  2. SINGULAIR [Concomitant]
     Active Substance: MONTELUKAST SODIUM
  3. LICOCAINE PATCH [Concomitant]
  4. AMBIEN 5 MG [Concomitant]
  5. VITAMIN D3 [Concomitant]
     Active Substance: CHOLECALCIFEROL
  6. ADVAIR HFA [Concomitant]
     Active Substance: FLUTICASONE PROPIONATE\SALMETEROL XINAFOATE
  7. ALLEGRA ALLERGY [Concomitant]
     Active Substance: FEXOFENADINE HYDROCHLORIDE
  8. FLONASE SPRAY [Concomitant]
  9. MICARDIS [Concomitant]
     Active Substance: TELMISARTAN
  10. SYNTHROID [Concomitant]
     Active Substance: LEVOTHYROXINE SODIUM
  11. DUPIXENT [Suspect]
     Active Substance: DUPILUMAB
     Indication: ASTHMA
     Dosage: ?          QUANTITY:2 INJECTION(S);OTHER FREQUENCY:EVERY 2 WEEKS;?
     Route: 058
     Dates: start: 20190227, end: 20190603
  12. ALBUTEROL INHALER [Concomitant]
     Active Substance: ALBUTEROL
  13. NORVASC [Concomitant]
     Active Substance: AMLODIPINE BESYLATE
  14. ZANTAC [Concomitant]
     Active Substance: RANITIDINE HYDROCHLORIDE
  15. VITAMIN B12 [Concomitant]
     Active Substance: CYANOCOBALAMIN
  16. ACIDOPHILUS PROBIOTIC [Concomitant]
  17. CPAP MACHINE SET AT 9 [Concomitant]
  18. MUTTIVITAMIN/MINERAL [Concomitant]

REACTIONS (9)
  - Pain [None]
  - Groin pain [None]
  - Loss of personal independence in daily activities [None]
  - Injection site pain [None]
  - Musculoskeletal pain [None]
  - Throat irritation [None]
  - Chest pain [None]
  - Insomnia [None]
  - Therapy cessation [None]

NARRATIVE: CASE EVENT DATE: 20190522
